FAERS Safety Report 8414638-8 (Version None)
Quarter: 2012Q2

REPORT INFORMATION
  Report Type: 
  Country: None (occurrence: None)
  Receive Date: 20120605
  Receipt Date: 20120528
  Transmission Date: 20120825
  Serious: Yes (Hospitalization)
  Sender: FDA-Public Use
  Company Number: JP-FRI-1000031039

PATIENT
  Age: 85 Year
  Sex: Female

DRUGS (6)
  1. AMOBAN [Suspect]
     Indication: INSOMNIA
     Dates: start: 20120401
  2. PREDNISOLONE [Concomitant]
  3. HALCION [Concomitant]
  4. MEMANTINE HCL [Suspect]
     Indication: DEMENTIA ALZHEIMER'S TYPE
     Dosage: 20 MG
     Route: 048
     Dates: start: 20120401, end: 20120512
  5. MINOCYCLINE HYDROCHLORIDE [Concomitant]
  6. ARICEPT [Concomitant]

REACTIONS (1)
  - GRANULOCYTOPENIA [None]
